FAERS Safety Report 13002831 (Version 2)
Quarter: 2017Q1

REPORT INFORMATION
  Report Type: Spontaneous
  Country: US (occurrence: US)
  Receive Date: 20161206
  Receipt Date: 20170124
  Transmission Date: 20170428
  Serious: No
  Sender: FDA-Public Use
  Company Number: US-JNJFOC-20161019874

PATIENT
  Age: 66 Year
  Sex: Female

DRUGS (2)
  1. METFORMIN [Concomitant]
     Active Substance: METFORMIN HYDROCHLORIDE
     Route: 065
  2. INVOKANA [Suspect]
     Active Substance: CANAGLIFLOZIN
     Indication: PRODUCT USED FOR UNKNOWN INDICATION
     Route: 048
     Dates: start: 20150109

REACTIONS (8)
  - Hypoaesthesia [Unknown]
  - Dizziness [Unknown]
  - Blood glucose increased [Not Recovered/Not Resolved]
  - Vision blurred [Unknown]
  - Neuropathy peripheral [Unknown]
  - Malaise [Unknown]
  - Gait disturbance [Unknown]
  - Paraesthesia [Unknown]

NARRATIVE: CASE EVENT DATE: 201509
